FAERS Safety Report 14203713 (Version 1)
Quarter: 2017Q4

REPORT INFORMATION
  Report Type: Spontaneous
  Country: US (occurrence: None)
  Receive Date: 20171117
  Receipt Date: 20171117
  Transmission Date: 20180321
  Serious: No
  Sender: FDA-Public Use
  Company Number: None

PATIENT
  Sex: Female

DRUGS (1)
  1. CAPECITABINE. [Suspect]
     Active Substance: CAPECITABINE
     Dosage: 2000MG  BIDFOR 14 DAYS THEN OFF FOR 7 DAYS   PO?
     Route: 048
     Dates: start: 20170914

REACTIONS (6)
  - Diarrhoea [None]
  - Vomiting [None]
  - Dehydration [None]
  - Nausea [None]
  - Palmar-plantar erythrodysaesthesia syndrome [None]
  - Headache [None]
